FAERS Safety Report 8609063-0 (Version None)
Quarter: 2012Q3

REPORT INFORMATION
  Report Type: 
  Country: None (occurrence: None)
  Receive Date: 20120821
  Receipt Date: 20120814
  Transmission Date: 20120928
  Serious: Yes (Death, Other)
  Sender: FDA-Public Use
  Company Number: US-JNJFOC-NSADSS2002025716

PATIENT
  Sex: Male
  Weight: 92.08 kg

DRUGS (6)
  1. MESALAMINE [Suspect]
     Indication: CROHN'S DISEASE
  2. MERCAPTOPURINE [Suspect]
     Dates: start: 19990401
  3. PREDNISONE TAB [Concomitant]
  4. MERCAPTOPURINE [Suspect]
     Indication: CROHN'S DISEASE
     Dates: start: 19990501, end: 20020512
  5. REMICADE [Suspect]
     Route: 041
  6. REMICADE [Suspect]
     Indication: CROHN'S DISEASE
     Route: 041
     Dates: start: 19990417, end: 19990417

REACTIONS (1)
  - T-CELL LYMPHOMA [None]
